FAERS Safety Report 6210051-2 (Version None)
Quarter: 2009Q2

REPORT INFORMATION
  Report Type: 
  Country: None (occurrence: None)
  Receive Date: 20090601
  Receipt Date: 20090521
  Transmission Date: 20091009
  Serious: Yes (Other)
  Sender: FDA-Public Use
  Company Number: US-PFIZER INC-2006088958

PATIENT
  Sex: Female
  Weight: 56.69 kg

DRUGS (6)
  1. PROVERA [Suspect]
     Indication: HORMONE REPLACEMENT THERAPY
     Dosage: 2.5 MG, UNK
     Route: 048
     Dates: start: 19950101, end: 19990101
  2. PREMARIN [Suspect]
     Indication: HORMONE REPLACEMENT THERAPY
     Dosage: 0.9 MG, UNK
     Dates: start: 19950101, end: 19990101
  3. CYCRIN [Suspect]
     Indication: HORMONE REPLACEMENT THERAPY
     Dosage: 2.5 MG, UNK
     Dates: start: 19950101, end: 19990101
  4. CHLORDIAZEPOXIDE [Concomitant]
     Indication: ANXIETY
     Dosage: UNK
     Dates: start: 19900101, end: 20030101
  5. CLONIDINE [Concomitant]
     Indication: BLOOD PRESSURE
     Dosage: UNK
     Dates: start: 19900101, end: 20030101
  6. PRILOSEC [Concomitant]
     Indication: REFLUX GASTRITIS
     Dosage: UNK
     Dates: start: 19900101

REACTIONS (1)
  - BREAST CANCER [None]
